FAERS Safety Report 8317370-4 (Version None)
Quarter: 2012Q2

REPORT INFORMATION
  Report Type: 
  Country: None (occurrence: None)
  Receive Date: 20120427
  Receipt Date: 20120417
  Transmission Date: 20120825
  Serious: Yes (Hospitalization)
  Sender: FDA-Public Use
  Company Number: US-NOVOPROD-349811

PATIENT
  Age: 41 Year
  Sex: Female

DRUGS (3)
  1. NOVOLOG [Suspect]
     Indication: TYPE 1 DIABETES MELLITUS
     Dosage: UNK
     Route: 058
     Dates: start: 20120101
  2. LANTUS [Suspect]
     Indication: TYPE 1 DIABETES MELLITUS
     Dosage: 25U IN AM, 18U IN PM
     Route: 058
     Dates: start: 20120101
  3. LANTUS [Suspect]
     Dosage: 25U IN AM, 5U IN PM
     Route: 058

REACTIONS (2)
  - IMPAIRED HEALING [None]
  - BLOOD GLUCOSE DECREASED [None]
